FAERS Safety Report 8158462-2 (Version None)
Quarter: 2011Q4

REPORT INFORMATION
  Report Type: 
  Country: None (occurrence: None)
  Receive Date: 20111229
  Receipt Date: 20111220
  Transmission Date: 20120403
  Serious: Yes (Other)
  Sender: FDA-Public Use
  Company Number: AECAN201100133

PATIENT
  Age: 73 Year
  Sex: Male

DRUGS (4)
  1. GAMUNEX [Concomitant]
  2. GAMUNEX [Suspect]
     Indication: PRODUCT USED FOR UNKNOWN INDICATION
     Dosage: 0.6 GM;TOTAL;IV
     Route: 042
     Dates: start: 20110411, end: 20110412
  3. GAMUNEX [Concomitant]
  4. GAMUNEX [Concomitant]

REACTIONS (3)
  - STAPHYLOCOCCAL INFECTION [None]
  - HYPOTENSION [None]
  - DYSPNOEA [None]
